FAERS Safety Report 11695979 (Version 1)
Quarter: 2015Q4

REPORT INFORMATION
  Report Type: Spontaneous
  Country: US (occurrence: None)
  Receive Date: 20151103
  Receipt Date: 20151103
  Transmission Date: 20160304
  Serious: Yes (Life-Threatening, Disabling)
  Sender: FDA-Public Use
  Company Number: None

PATIENT
  Age: 20 Year
  Sex: Female
  Weight: 95.26 kg

DRUGS (1)
  1. MINOCYCLINE 100MG TEVA [Suspect]
     Active Substance: MINOCYCLINE\MINOCYCLINE HYDROCHLORIDE
     Indication: ACNE CYSTIC
     Dosage: 2 PILLS
     Route: 048

REACTIONS (3)
  - Premature menopause [None]
  - Menopause [None]
  - Benign intracranial hypertension [None]

NARRATIVE: CASE EVENT DATE: 20150207
